FAERS Safety Report 8592053-4 (Version None)
Quarter: 2012Q3

REPORT INFORMATION
  Report Type: 
  Country: None (occurrence: None)
  Receive Date: 20120814
  Receipt Date: 20120806
  Transmission Date: 20120928
  Serious: Yes (Other)
  Sender: FDA-Public Use
  Company Number: FR-ASTELLAS-2012EU005208

PATIENT
  Sex: Male
  Weight: 73 kg

DRUGS (8)
  1. ATORVASTATIN [Concomitant]
     Indication: DIABETES MELLITUS
     Dosage: 10 MG, UNKNOWN/D
     Route: 048
     Dates: start: 20010118
  2. PROGRAF [Suspect]
     Indication: RENAL TRANSPLANT
     Dosage: 5 MG, UNKNOWN/D
     Route: 065
     Dates: start: 20111013, end: 20111104
  3. CELLCEPT [Concomitant]
     Indication: PROPHYLAXIS AGAINST TRANSPLANT REJECTION
     Dosage: 500 MG, UNKNOWN/D
     Route: 048
  4. PREDNISONE TAB [Concomitant]
     Indication: PROPHYLAXIS AGAINST TRANSPLANT REJECTION
     Dosage: 7.5 MG, UNKNOWN/D
     Route: 048
  5. PROGRAF [Suspect]
     Dosage: 4.5 MG, UNKNOWN/D
     Route: 065
     Dates: start: 20111105, end: 20120201
  6. PROGRAF [Suspect]
     Dosage: 3.5 MG, UNKNOWN/D
     Route: 065
     Dates: start: 20120426, end: 20120612
  7. BACTRIM [Concomitant]
     Indication: INFECTION
     Dosage: UNK
     Route: 048
  8. PROGRAF [Suspect]
     Dosage: 4 MG, UNKNOWN/D
     Route: 065
     Dates: start: 20120202, end: 20120425

REACTIONS (3)
  - BOWEN'S DISEASE [None]
  - CUSHINGOID [None]
  - HYPERKERATOSIS [None]
